FAERS Safety Report 21959974 (Version 3)
Quarter: 2023Q1

REPORT INFORMATION
  Report Type: Report from Study
  Country: CA (occurrence: CA)
  Receive Date: 20230206
  Receipt Date: 20230213
  Transmission Date: 20230417
  Serious: Yes (Other)
  Sender: FDA-Public Use
  Company Number: CA-JNJFOC-20220453305

PATIENT
  Age: 7 Decade
  Sex: Female

DRUGS (8)
  1. STELARA [Suspect]
     Active Substance: USTEKINUMAB
     Indication: Crohn^s disease
     Dosage: ON 10-FEB-2021 PATIENT RECEIVED STELARA DOSE.
     Route: 042
  2. STELARA [Suspect]
     Active Substance: USTEKINUMAB
     Dosage: ON 27-JAN-2023, THE PATIENT RECEIVED 15TH LATEST INFUSION OF 90 MG
     Route: 058
  3. STELARA [Suspect]
     Active Substance: USTEKINUMAB
     Route: 058
  4. STELARA [Suspect]
     Active Substance: USTEKINUMAB
     Route: 058
  5. RISEDRONATE SODIUM [Concomitant]
     Active Substance: RISEDRONATE SODIUM
     Indication: Product used for unknown indication
     Route: 065
  6. AMITRIPTYLINE [Concomitant]
     Active Substance: AMITRIPTYLINE
     Indication: Product used for unknown indication
     Route: 065
  7. MOMETASONE [Concomitant]
     Active Substance: MOMETASONE
     Indication: Product used for unknown indication
     Route: 065
  8. CHOLECALCIFEROL [Concomitant]
     Active Substance: CHOLECALCIFEROL
     Indication: Product used for unknown indication
     Route: 065

REACTIONS (6)
  - Neoplasm malignant [Not Recovered/Not Resolved]
  - Rectal haemorrhage [Not Recovered/Not Resolved]
  - Incision site complication [Recovering/Resolving]
  - Incision site erythema [Recovering/Resolving]
  - Post procedural oedema [Recovering/Resolving]
  - Abdominal pain [Unknown]

NARRATIVE: CASE EVENT DATE: 20200101
